FAERS Safety Report 16458138 (Version 2)
Quarter: 2021Q4

REPORT INFORMATION
  Report Type: Spontaneous
  Country: US (occurrence: US)
  Receive Date: 20190620
  Receipt Date: 20211027
  Transmission Date: 20220303
  Serious: Yes (Disabling)
  Sender: FDA-Public Use
  Company Number: US-TEVA-2019-US-1064610

PATIENT
  Age: 75 Year
  Sex: Female

DRUGS (11)
  1. DOCETAXEL [Suspect]
     Active Substance: DOCETAXEL
     Indication: Breast cancer female
     Dosage: NUMBER OF CYCLE -06, FREQUENCY -EVERY THREE WEEKS; DOSE: 125 MG, 75 MG
     Route: 042
     Dates: start: 20141210, end: 20150325
  2. DOCETAXEL [Suspect]
     Active Substance: DOCETAXEL
     Indication: Breast cancer female
     Dosage: NUMBER OF CYCLE-06, FREQUENCY -EVERY THREE WEEKS; DOSE: 125 MG, 75 MG
     Route: 042
     Dates: start: 20141210, end: 20150325
  3. DOCETAXEL [Suspect]
     Active Substance: DOCETAXEL
     Dosage: NUMBER OF CYCLE-06, FREQUENCY -EVERY THREE WEEKS
     Route: 042
     Dates: start: 20141210, end: 20150325
  4. PERJETA [Suspect]
     Active Substance: PERTUZUMAB
     Indication: Breast cancer female
     Dosage: NUMBER OF CYCLE-06, FREQUENCY -EVERY THREE WEEKS; DOSE: 840 MG, 420 MG
     Route: 042
     Dates: start: 20141210, end: 20150325
  5. HERCEPTIN [Suspect]
     Active Substance: TRASTUZUMAB
     Indication: Breast cancer female
     Dosage: NUMBER OF CYCLE-06, FREQUENCY -EVERY THREE WEEKS; DOSE: 507 MG, 676 MG, 469 MG
     Route: 042
     Dates: start: 20141210, end: 20150325
  6. LEVOTHYROXINE [Concomitant]
     Active Substance: LEVOTHYROXINE
     Route: 065
     Dates: start: 2009
  7. ARIMIDEX [Concomitant]
     Active Substance: ANASTROZOLE
     Route: 065
  8. XGEVA [Concomitant]
     Active Substance: DENOSUMAB
     Dosage: 120 MG Q28D
     Route: 065
  9. NEULASTA [Concomitant]
     Active Substance: PEGFILGRASTIM
     Dosage: 6 MG
     Route: 065
  10. DEXAMETHASONE SODIUM PHOSPHATE [Concomitant]
     Active Substance: DEXAMETHASONE SODIUM PHOSPHATE
     Dosage: DOSE: 12 MG, 10 MG
     Route: 065
  11. PROCHLORPERAZINE MALEATE [Concomitant]
     Active Substance: PROCHLORPERAZINE MALEATE
     Dosage: DOSE 5 MG
     Route: 065

REACTIONS (5)
  - Alopecia areata [Not Recovered/Not Resolved]
  - Madarosis [Not Recovered/Not Resolved]
  - Fatigue [Unknown]
  - Diarrhoea [Recovering/Resolving]
  - Nausea [Unknown]

NARRATIVE: CASE EVENT DATE: 20141201
